FAERS Safety Report 13239659 (Version 1)
Quarter: 2017Q1

REPORT INFORMATION
  Report Type: Spontaneous
  Country: US (occurrence: US)
  Receive Date: 20170216
  Receipt Date: 20170216
  Transmission Date: 20170428
  Serious: No
  Sender: FDA-Public Use
  Company Number: US-RELYPSA-RLY2016003439

PATIENT
  Sex: Female

DRUGS (27)
  1. FIBERCON [Concomitant]
     Active Substance: CALCIUM POLYCARBOPHIL
  2. LASIX [Concomitant]
     Active Substance: FUROSEMIDE
  3. MAGNESIUM ASPARTATE [Concomitant]
     Active Substance: MAGNESIUM ASPARTATE
  4. PRAVACHOL [Concomitant]
     Active Substance: PRAVASTATIN SODIUM
  5. CENTRUM SILVER                     /02363801/ [Concomitant]
     Active Substance: MINERALS\VITAMINS
  6. FUROSEMIDE. [Concomitant]
     Active Substance: FUROSEMIDE
  7. OSTEO-PORETICAL [Concomitant]
  8. STOOL SOFTENER [Concomitant]
  9. VITAMIN E                          /00110501/ [Concomitant]
     Active Substance: TOCOPHEROL
  10. VELTASSA [Suspect]
     Active Substance: PATIROMER
     Indication: HYPERKALAEMIA
     Dosage: 8.4 G, QD
     Route: 048
     Dates: start: 20160810, end: 2016
  11. TUMS                               /00193601/ [Concomitant]
     Active Substance: CALCIUM CARBONATE\MAGNESIUM CARBONATE\MAGNESIUM TRISILICATE
  12. PRILOSEC [Concomitant]
     Active Substance: OMEPRAZOLE MAGNESIUM
  13. PRAVASTATIN SODIUM. [Concomitant]
     Active Substance: PRAVASTATIN SODIUM
  14. COLCHICINE. [Concomitant]
     Active Substance: COLCHICINE
  15. ZETIA [Concomitant]
     Active Substance: EZETIMIBE
  16. CALCIUM 600 PLUS VITAMIN D3 [Concomitant]
  17. RESTORIL [Concomitant]
     Active Substance: TEMAZEPAM
  18. ASPIRIN                            /00002701/ [Concomitant]
     Active Substance: ASPIRIN
  19. CLONIDINE HCL [Concomitant]
     Active Substance: CLONIDINE HYDROCHLORIDE
  20. MULTIVITAMINS [Concomitant]
     Active Substance: VITAMINS
  21. GABAPENTIN. [Concomitant]
     Active Substance: GABAPENTIN
  22. NITROGLYCERIN. [Concomitant]
     Active Substance: NITROGLYCERIN
  23. PINDOLOL. [Concomitant]
     Active Substance: PINDOLOL
  24. PLAVIX [Concomitant]
     Active Substance: CLOPIDOGREL BISULFATE
  25. SUPER B COMPLEX WITH C [Concomitant]
  26. TEMAZEPAM. [Concomitant]
     Active Substance: TEMAZEPAM
  27. COLACE [Concomitant]
     Active Substance: DOCUSATE SODIUM

REACTIONS (1)
  - Blood potassium decreased [Unknown]

NARRATIVE: CASE EVENT DATE: 2016
